FAERS Safety Report 4874761-1 (Version None)
Quarter: 2006Q1

REPORT INFORMATION
  Report Type: 
  Country: None (occurrence: None)
  Receive Date: 20060104
  Receipt Date: 20051221
  Transmission Date: 20060701
  Serious: Yes (Other)
  Sender: FDA-Public Use
  Company Number: 2005172028

PATIENT
  Age: 31 Year
  Sex: Female

DRUGS (1)
  1. PHENYTOIN SODIUM [Suspect]
     Indication: PETIT MAL EPILEPSY
     Dosage: DAILY, ORAL
     Route: 048
     Dates: start: 19780101

REACTIONS (3)
  - DIZZINESS [None]
  - PETIT MAL EPILEPSY [None]
  - SYNCOPE [None]
